FAERS Safety Report 4353812-7 (Version None)
Quarter: 2004Q2

REPORT INFORMATION
  Report Type: 
  Country: None (occurrence: None)
  Receive Date: 20040430
  Receipt Date: 20040420
  Transmission Date: 20050107
  Serious: Yes (Hospitalization)
  Sender: FDA-Public Use
  Company Number: DE-JNJFOC-20040404516

PATIENT
  Age: 36 Year
  Sex: Male

DRUGS (11)
  1. RISPERDAL [Suspect]
     Indication: SCHIZOPHRENIA
     Dosage: 1-3 MG/DAY; 4 MG; 5 MG; 6 MG
     Dates: start: 20030110, end: 20020121
  2. RISPERDAL [Suspect]
     Indication: SCHIZOPHRENIA
     Dosage: 1-3 MG/DAY; 4 MG; 5 MG; 6 MG
     Dates: start: 20020920, end: 20020923
  3. RISPERDAL [Suspect]
     Indication: SCHIZOPHRENIA
     Dosage: 1-3 MG/DAY; 4 MG; 5 MG; 6 MG
     Dates: start: 20020924, end: 20030109
  4. RISPERDAL [Suspect]
     Indication: SCHIZOPHRENIA
     Dosage: 1-3 MG/DAY; 4 MG; 5 MG; 6 MG
     Dates: start: 20030122
  5. CLOZAPINE [Suspect]
     Dosage: 12.5 MG; 25 MG
     Dates: start: 20030303
  6. CLOZAPINE [Suspect]
     Dosage: 12.5 MG; 25 MG
     Dates: start: 20030304
  7. ZYPREXA [Suspect]
     Dosage: 5-10 M G
     Dates: start: 20021018, end: 20021106
  8. CITALOPRAM HYDROBROMIDE [Suspect]
     Dosage: 20 MG
  9. THEOPHYLLINE [Suspect]
     Dosage: 350 MG
     Dates: start: 20030303
  10. ASS (UNKNOWN) (ACETYLSALICYLIC ACID [Concomitant]
  11. PULMICORT (UNKNOWN) BUDESONIDE [Concomitant]

REACTIONS (4)
  - DRUG INTERACTION [None]
  - FACIAL BONES FRACTURE [None]
  - FALL [None]
  - GRAND MAL CONVULSION [None]
